FAERS Safety Report 9496452 (Version 1)
Quarter: 2013Q3

REPORT INFORMATION
  Report Type: Spontaneous
  Country: US (occurrence: None)
  Receive Date: 20130829
  Receipt Date: 20130829
  Transmission Date: 20140515
  Serious: Yes (Hospitalization)
  Sender: FDA-Public Use
  Company Number: 150724

PATIENT
  Age: 52 Year
  Sex: Female
  Weight: 46.27 kg

DRUGS (1)
  1. LEUCOVORIN CALCIUM [Suspect]
     Indication: PANCREATIC CARCINOMA
     Dates: start: 20130404, end: 20130418

REACTIONS (1)
  - Febrile neutropenia [None]
